FAERS Safety Report 14708695 (Version 2)
Quarter: 2019Q2

REPORT INFORMATION
  Report Type: Spontaneous
  Country: US (occurrence: US)
  Receive Date: 20180403
  Receipt Date: 20190402
  Transmission Date: 20190711
  Serious: Yes (Other)
  Sender: FDA-Public Use
  Company Number: US-ASTRAZENECA-2018SE40300

PATIENT
  Age: 50 Year
  Sex: Male
  Weight: 125 kg

DRUGS (26)
  1. NEXIUM 24HR [Suspect]
     Active Substance: ESOMEPRAZOLE MAGNESIUM
     Route: 048
     Dates: start: 200201, end: 201701
  2. BENZONATATE. [Concomitant]
     Active Substance: BENZONATATE
  3. METFORMIN [Concomitant]
     Active Substance: METFORMIN HYDROCHLORIDE
  4. PRILOSEC [Suspect]
     Active Substance: OMEPRAZOLE MAGNESIUM
     Route: 048
     Dates: start: 200201, end: 201701
  5. PREVACID 24 HR [Suspect]
     Active Substance: LANSOPRAZOLE
     Route: 065
     Dates: start: 20020101, end: 20171231
  6. CANAGLIFLOZIN [Concomitant]
     Active Substance: CANAGLIFLOZIN
  7. FERROUS SULFATE. [Concomitant]
     Active Substance: FERROUS SULFATE
  8. LORATADINE. [Concomitant]
     Active Substance: LORATADINE
  9. LOSARTAN. [Concomitant]
     Active Substance: LOSARTAN
  10. PRILOSEC OTC [Suspect]
     Active Substance: OMEPRAZOLE MAGNESIUM
     Route: 048
     Dates: start: 200201, end: 201701
  11. GABAPENTIN. [Concomitant]
     Active Substance: GABAPENTIN
  12. PROTONIX [Suspect]
     Active Substance: PANTOPRAZOLE SODIUM
     Route: 065
     Dates: start: 200201, end: 201701
  13. LISINOPRIL. [Concomitant]
     Active Substance: LISINOPRIL
  14. XARELTO [Concomitant]
     Active Substance: RIVAROXABAN
  15. NEXIUM [Suspect]
     Active Substance: ESOMEPRAZOLE MAGNESIUM
     Route: 048
     Dates: start: 200201, end: 201701
  16. CARVEDILOL. [Concomitant]
     Active Substance: CARVEDILOL
  17. DIGOXIN. [Concomitant]
     Active Substance: DIGOXIN
  18. DEXILANT [Suspect]
     Active Substance: DEXLANSOPRAZOLE
     Route: 065
     Dates: start: 200201, end: 201701
  19. PROTONIX [Suspect]
     Active Substance: PANTOPRAZOLE SODIUM
     Route: 065
     Dates: start: 20020101, end: 20171231
  20. PREVACID 24 HR [Suspect]
     Active Substance: LANSOPRAZOLE
     Route: 065
     Dates: start: 200201, end: 201701
  21. VICTOZA [Concomitant]
     Active Substance: LIRAGLUTIDE
  22. NEXIUM [Suspect]
     Active Substance: ESOMEPRAZOLE MAGNESIUM
     Route: 048
     Dates: start: 20020101, end: 20171231
  23. PREVACID [Suspect]
     Active Substance: LANSOPRAZOLE
     Route: 065
     Dates: start: 200201, end: 201701
  24. PREVACID [Suspect]
     Active Substance: LANSOPRAZOLE
     Route: 065
     Dates: start: 20020101, end: 20171231
  25. FAMOTIDINE. [Concomitant]
     Active Substance: FAMOTIDINE
  26. SPIRONOLACTONE. [Concomitant]
     Active Substance: SPIRONOLACTONE

REACTIONS (4)
  - Renal injury [Unknown]
  - Acute kidney injury [Unknown]
  - Chronic kidney disease [Unknown]
  - Renal failure [Unknown]
